FAERS Safety Report 5452137-6 (Version None)
Quarter: 2007Q3

REPORT INFORMATION
  Report Type: 
  Country: None (occurrence: None)
  Receive Date: 20070912
  Receipt Date: 20070828
  Transmission Date: 20080115
  Serious: Yes (Life-Threatening, Hospitalization)
  Sender: FDA-Public Use
  Company Number: 2007US002109

PATIENT
  Age: 68 Year
  Sex: Male

DRUGS (11)
  1. PROGRAF [Suspect]
     Indication: KIDNEY TRANSPLANT REJECTION
     Dosage: 4 MG, BID, ORAL
     Route: 048
     Dates: start: 20051024
  2. MYCOPHENOLATE MOFETIL [Suspect]
     Indication: KIDNEY TRANSPLANT REJECTION
     Dosage: 500 MG, BID, ORAL
     Route: 048
     Dates: start: 20051024
  3. PREDNISONE TAB [Suspect]
     Indication: KIDNEY TRANSPLANT REJECTION
     Dosage: 30 MG, ORAL
     Route: 048
     Dates: start: 20051025
  4. VALCYTE (VALGACICLOVIR HYDROCHLORIDE) [Concomitant]
  5. METOPROLOL TARTRATE [Concomitant]
  6. ZANTAC 150 [Concomitant]
  7. GLYBURIDE [Concomitant]
  8. COLACE (DOCUSATE SODIUM) [Concomitant]
  9. NIFEDIPINE [Concomitant]
  10. KEXELATE (SODIUM POLYSTYRENE SULFONATE) [Concomitant]
  11. BACTRIM (TRIMETHOPRIM) [Concomitant]

REACTIONS (2)
  - DEEP VEIN THROMBOSIS [None]
  - PULMONARY EMBOLISM [None]
